FAERS Safety Report 5400154-4 (Version None)
Quarter: 2007Q3

REPORT INFORMATION
  Report Type: 
  Country: None (occurrence: None)
  Receive Date: 20070725
  Receipt Date: 20070717
  Transmission Date: 20080115
  Serious: Yes (Life-Threatening, Hospitalization)
  Sender: FDA-Public Use
  Company Number: 2007-161460-NL

PATIENT
  Age: 67 Year
  Sex: Female

DRUGS (11)
  1. DEXAMETHASONE 0.5MG TAB [Suspect]
     Indication: HODGKIN'S DISEASE
     Dosage: INTRATHECAL
     Route: 037
  2. DOXORUBICIN [Suspect]
     Indication: HODGKIN'S DISEASE
     Dosage: DF
  3. BLEOMYCIN [Suspect]
     Indication: HODGKIN'S DISEASE
     Dosage: DF
  4. CISPLATIN [Suspect]
     Indication: HODGKIN'S DISEASE
     Dosage: DF
  5. CYCLOPHOSPHAMIDE [Suspect]
     Indication: HODGKIN'S DISEASE
     Dosage: DF
  6. CYTARABINE [Suspect]
     Indication: HODGKIN'S DISEASE
     Dosage: DF
  7. ETOPOSIDE [Suspect]
     Indication: HODGKIN'S DISEASE
     Dosage: DF
  8. METHOTREXATE [Suspect]
     Indication: HODGKIN'S DISEASE
     Dosage: DF
  9. PREDNISONE TAB [Suspect]
     Indication: HODGKIN'S DISEASE
     Dosage: DF
  10. PROCARBAZINE HYDROCHLORIDE [Suspect]
     Indication: HODGKIN'S DISEASE
     Dosage: DF
  11. VINCRISTINE [Suspect]
     Indication: HODGKIN'S DISEASE
     Dosage: DF

REACTIONS (8)
  - COORDINATION ABNORMAL [None]
  - FEBRILE NEUTROPENIA [None]
  - GAIT DISTURBANCE [None]
  - HEADACHE [None]
  - MALIGNANT NEOPLASM PROGRESSION [None]
  - METASTASIS [None]
  - PARAESTHESIA [None]
  - PARAPARESIS [None]
